FAERS Safety Report 12932873 (Version 1)
Quarter: 2016Q4

REPORT INFORMATION
  Report Type: Spontaneous
  Country: US (occurrence: US)
  Receive Date: 20161111
  Receipt Date: 20161111
  Transmission Date: 20170207
  Serious: Yes (Other)
  Sender: FDA-Public Use
  Company Number: US-BAYER-2016-214274

PATIENT
  Age: 72 Year
  Sex: Female
  Weight: 68.27 kg

DRUGS (1)
  1. AFRIN ORIGINAL [Suspect]
     Active Substance: OXYMETAZOLINE HYDROCHLORIDE
     Indication: NASAL OBSTRUCTION
     Dosage: UNK, 1 OR 2 SPRAYS
     Route: 045

REACTIONS (4)
  - Product use issue [Unknown]
  - Drug ineffective [Unknown]
  - Rebound effect [Unknown]
  - Drug dependence [Unknown]
